FAERS Safety Report 20731712 (Version 1)
Quarter: 2022Q2

REPORT INFORMATION
  Report Type: Spontaneous
  Country: US (occurrence: US)
  Receive Date: 20220420
  Receipt Date: 20220420
  Transmission Date: 20220720
  Serious: No
  Sender: FDA-Public Use
  Company Number: US-SANOFI-01065456

PATIENT
  Age: 48 Year
  Sex: Female

DRUGS (1)
  1. ADLYXIN [Suspect]
     Active Substance: LIXISENATIDE
     Dosage: 0.2 ML, QD
     Route: 058
     Dates: start: 20210601

REACTIONS (1)
  - Dizziness [Unknown]
